FAERS Safety Report 5509088-8 (Version None)
Quarter: 2007Q4

REPORT INFORMATION
  Report Type: 
  Country: None (occurrence: None)
  Receive Date: 20071107
  Receipt Date: 20071029
  Transmission Date: 20080405
  Serious: Yes (Death)
  Sender: FDA-Public Use
  Company Number: HU-GENENTECH-250464

PATIENT
  Sex: Female
  Weight: 54 kg

DRUGS (5)
  1. RITUXIMAB [Suspect]
     Indication: MANTLE CELL LYMPHOMA
     Dosage: 600 MG, Q3W
     Route: 042
     Dates: start: 20070901
  2. CYCLOPHOSPHAMIDE [Concomitant]
     Indication: MANTLE CELL LYMPHOMA
  3. EPIRUBICIN [Concomitant]
     Indication: MANTLE CELL LYMPHOMA
  4. VINCRISTINE [Concomitant]
     Indication: MANTLE CELL LYMPHOMA
  5. PREDNISONE [Concomitant]
     Indication: MANTLE CELL LYMPHOMA

REACTIONS (2)
  - ENCEPHALOMALACIA [None]
  - LYMPHOMA [None]
